FAERS Safety Report 7526670-7 (Version None)
Quarter: 2011Q2

REPORT INFORMATION
  Report Type: 
  Country: None (occurrence: None)
  Receive Date: 20110606
  Receipt Date: 20110531
  Transmission Date: 20111010
  Serious: Yes (Hospitalization, Other)
  Sender: FDA-Public Use
  Company Number: FR-PFIZER INC-2011116861

PATIENT
  Age: 89 Year
  Sex: Female

DRUGS (2)
  1. ATORVASTATIN [Suspect]
     Dosage: 10 MG, 1X/DAY
     Route: 048
     Dates: start: 20101201, end: 20110202
  2. PERINDOPRIL ERBUMINE [Concomitant]
     Dosage: 2.5 MG, 1X/DAY
     Route: 048
     Dates: end: 20110202

REACTIONS (2)
  - PANCREATITIS ACUTE [None]
  - GALLBLADDER DISORDER [None]
